FAERS Safety Report 10671682 (Version 1)
Quarter: 2014Q4

REPORT INFORMATION
  Report Type: Spontaneous
  Country: US (occurrence: None)
  Receive Date: 20141222
  Receipt Date: 20141222
  Transmission Date: 20150529
  Serious: Yes (Disabling)
  Sender: FDA-Public Use
  Company Number: None

PATIENT
  Age: 15 Month
  Sex: Female

DRUGS (1)
  1. TAMIFLU [Suspect]
     Active Substance: OSELTAMIVIR PHOSPHATE
     Indication: INFLUENZA
     Route: 048
     Dates: start: 20141217, end: 20141219

REACTIONS (6)
  - Balance disorder [None]
  - Tremor [None]
  - Irritability [None]
  - Swollen tongue [None]
  - Hallucination [None]
  - Fall [None]

NARRATIVE: CASE EVENT DATE: 20141219
